FAERS Safety Report 8847028 (Version 1)
Quarter: 2012Q4

REPORT INFORMATION
  Report Type: Report from Study
  Country: US (occurrence: US)
  Receive Date: 20121018
  Receipt Date: 20121018
  Transmission Date: 20130627
  Serious: Yes (Hospitalization)
  Sender: FDA-Public Use
  Company Number: US-SANOFI-AVENTIS-2012SA074334

PATIENT
  Age: 71 Year
  Sex: Male
  Weight: 89.9 kg

DRUGS (6)
  1. DOCETAXEL [Suspect]
     Indication: HEAD AND NECK CANCER
     Route: 065
     Dates: start: 20060912, end: 20060912
  2. DOCETAXEL [Suspect]
     Indication: HEAD AND NECK CANCER
     Route: 065
     Dates: start: 20061003, end: 20061003
  3. CETUXIMAB [Suspect]
     Indication: HEAD AND NECK CANCER
     Route: 065
     Dates: start: 20060912, end: 20060912
  4. CETUXIMAB [Suspect]
     Indication: HEAD AND NECK CANCER
     Route: 065
     Dates: start: 20061003, end: 20061003
  5. THERAPEUTIC RADIOPHARMACEUTICALS [Suspect]
     Indication: HEAD AND NECK CANCER
     Dates: start: 20060912, end: 20060912
  6. THERAPEUTIC RADIOPHARMACEUTICALS [Suspect]
     Indication: HEAD AND NECK CANCER
     Dates: start: 20061009, end: 20061009

REACTIONS (6)
  - Atrial fibrillation [Recovered/Resolved]
  - Confusional state [Unknown]
  - Thrombotic thrombocytopenic purpura [Unknown]
  - Activated partial thromboplastin time prolonged [Unknown]
  - Lung infection [Recovered/Resolved]
  - Blood creatinine increased [Unknown]
